FAERS Safety Report 6732792-0 (Version None)
Quarter: 2010Q2

REPORT INFORMATION
  Report Type: 
  Country: None (occurrence: None)
  Receive Date: 20100519
  Receipt Date: 20100506
  Transmission Date: 20101027
  Serious: Yes (Hospitalization)
  Sender: FDA-Public Use
  Company Number: DE-ELI_LILLY_AND_COMPANY-DE201005002393

PATIENT
  Age: 35 Year
  Sex: Female

DRUGS (4)
  1. CYMBALTA [Suspect]
     Indication: DEPRESSION
     Dosage: 60 MG, UNK
     Route: 048
     Dates: start: 20090101, end: 20100401
  2. SEROQUEL [Concomitant]
  3. KATADOLON [Concomitant]
  4. TILIDIN [Concomitant]
     Dosage: 50 MG, 2/D

REACTIONS (1)
  - HEPATITIS [None]
